FAERS Safety Report 7574508-4 (Version None)
Quarter: 2011Q2

REPORT INFORMATION
  Report Type: 
  Country: None (occurrence: None)
  Receive Date: 20110621
  Receipt Date: 20110606
  Transmission Date: 20111010
  Serious: Yes (Hospitalization)
  Sender: FDA-Public Use
  Company Number: 2011MA006863

PATIENT
  Age: 53 Year
  Sex: Female

DRUGS (9)
  1. GABAPENTIN [Suspect]
     Indication: NEURALGIA
     Dosage: 300 MG; QAM;
  2. SPIRONOLACTONE [Concomitant]
  3. TRAZODONE HCL [Concomitant]
  4. LACTULOSE [Concomitant]
  5. URSODIOL [Concomitant]
  6. OMEPRAZOLE [Concomitant]
  7. NADOLOL [Concomitant]
  8. FERROUS SULFATE TAB [Concomitant]
  9. CITALOPRAM HYDROBROMIDE [Concomitant]

REACTIONS (15)
  - CONFUSIONAL STATE [None]
  - ABDOMINAL PAIN [None]
  - HAEMATEMESIS [None]
  - MELAENA [None]
  - RESTLESSNESS [None]
  - PHOTOPHOBIA [None]
  - ANXIETY [None]
  - HEADACHE [None]
  - ALCOHOL WITHDRAWAL SYNDROME [None]
  - AGITATION [None]
  - BLOOD ETHANOL DECREASED [None]
  - HAEMOGLOBIN DECREASED [None]
  - DISORIENTATION [None]
  - NERVOUSNESS [None]
  - HEPATIC ENCEPHALOPATHY [None]
